FAERS Safety Report 12294780 (Version 1)
Quarter: 2016Q2

REPORT INFORMATION
  Report Type: Spontaneous
  Country: US (occurrence: US)
  Receive Date: 20160422
  Receipt Date: 20160422
  Transmission Date: 20160815
  Serious: No
  Sender: FDA-Public Use
  Company Number: US-PFIZER INC-2016206110

PATIENT
  Sex: Male

DRUGS (1)
  1. ADVIL [Suspect]
     Active Substance: IBUPROFEN
     Dosage: 2 DF, SINGLE
     Dates: start: 20160407

REACTIONS (3)
  - Vomiting [Unknown]
  - Fall [Unknown]
  - Glossodynia [Unknown]

NARRATIVE: CASE EVENT DATE: 201604
